FAERS Safety Report 12859903 (Version 1)
Quarter: 2016Q4

REPORT INFORMATION
  Report Type: Report from Study
  Country: US (occurrence: US)
  Receive Date: 20161018
  Receipt Date: 20161018
  Transmission Date: 20170207
  Serious: Yes (Hospitalization)
  Sender: FDA-Public Use
  Company Number: US-ROCHE-1843253

PATIENT
  Age: 76 Year

DRUGS (7)
  1. OCTREOTIDE ACETATE. [Suspect]
     Active Substance: OCTREOTIDE ACETATE
     Indication: NEUROENDOCRINE CARCINOMA
     Dosage: CYCLE = 21 DAYS: OCTREOTIDE LAR DEPOT:  20 MG IM, DAY 1. LAST DOSE PRIOR TO AE; 01/DEC/2009
     Route: 030
     Dates: start: 20090714
  2. LANOXIN [Suspect]
     Active Substance: DIGOXIN
     Indication: NEUROENDOCRINE CARCINOMA
     Route: 065
  3. BEVACIZUMAB [Suspect]
     Active Substance: BEVACIZUMAB
     Indication: NEUROENDOCRINE CARCINOMA
     Dosage: CYCLE = 21 DAYS: 15MG/KG IV OVER 30-90 MIN, DAY 1. LAST DOSE PRIOR TO AE; 01/DEC/2009
     Route: 042
     Dates: start: 20090714
  4. CAPTOPRIL. [Suspect]
     Active Substance: CAPTOPRIL
     Indication: NEUROENDOCRINE CARCINOMA
     Route: 065
  5. COUMADIN [Suspect]
     Active Substance: WARFARIN SODIUM
     Indication: NEUROENDOCRINE CARCINOMA
     Route: 065
  6. OCTREOTIDE ACETATE. [Suspect]
     Active Substance: OCTREOTIDE ACETATE
     Indication: NEUROENDOCRINE CARCINOMA
     Dosage: CYCLE = 21 DAYS: SHORT-ACTING OCTREOTIDE, DAY 1, CYCLE 1 ONLY. LAST DOSE PRIOR TO AE; 01/DEC/2009
     Route: 058
     Dates: start: 20090714
  7. NIFEDIPINE. [Suspect]
     Active Substance: NIFEDIPINE
     Indication: NEUROENDOCRINE CARCINOMA
     Route: 065

REACTIONS (2)
  - Depressed level of consciousness [Unknown]
  - Syncope [Unknown]

NARRATIVE: CASE EVENT DATE: 20091203
